FAERS Safety Report 20220838 (Version 4)
Quarter: 2022Q1

REPORT INFORMATION
  Report Type: Spontaneous
  Country: IT (occurrence: IT)
  Receive Date: 20211223
  Receipt Date: 20220207
  Transmission Date: 20220423
  Serious: Yes (Death, Life-Threatening, Hospitalization, Other)
  Sender: FDA-Public Use
  Company Number: IT-NAPPMUNDI-GBR-2021-0093177

PATIENT
  Age: 66 Year
  Sex: Male

DRUGS (16)
  1. ACYCLOVIR [Interacting]
     Active Substance: ACYCLOVIR
     Indication: Herpes simplex
     Dosage: 2400 MILLIGRAM, ONCE A DAY (800 MG, TID (3/DAY))
     Route: 065
  2. ACYCLOVIR [Interacting]
     Active Substance: ACYCLOVIR
     Indication: Confusional state
  3. AZITHROMYCIN [Interacting]
     Active Substance: AZITHROMYCIN
     Indication: COVID-19
     Dosage: 500 MILLIGRAM, ONCE A DAY
     Route: 065
  4. AZITHROMYCIN [Interacting]
     Active Substance: AZITHROMYCIN
     Indication: Off label use
     Dosage: UNK
     Route: 065
  5. HYDROXYCHLOROQUINE [Interacting]
     Active Substance: HYDROXYCHLOROQUINE
     Indication: COVID-19
     Dosage: 400 MILLIGRAM/SQ. METER (400 MG/M2, A DAY)
     Route: 065
  6. HYDROXYCHLOROQUINE [Interacting]
     Active Substance: HYDROXYCHLOROQUINE
     Dosage: 400 MILLIGRAM, ONCE A DAY(200 MG, BID)
     Route: 065
  7. HYDROXYCHLOROQUINE [Interacting]
     Active Substance: HYDROXYCHLOROQUINE
     Dosage: 800 MILLIGRAM, ONCE A DAY
     Route: 065
  8. METHYLPREDNISOLONE [Interacting]
     Active Substance: METHYLPREDNISOLONE
     Indication: COVID-19
     Dosage: 40 MILLIGRAM, ONCE A DAY
     Route: 065
  9. METHYLPREDNISOLONE [Interacting]
     Active Substance: METHYLPREDNISOLONE
     Dosage: 80 MILLIGRAM (THEN TAPERED TO 40 MG/DAY FOR 3 DAYS AND 20 MG/DAY FOR 1 DAY)
     Route: 065
  10. METHYLPREDNISOLONE [Interacting]
     Active Substance: METHYLPREDNISOLONE
     Dosage: 20 MILLIGRAM, ONCE A DAY
     Route: 065
  11. MIDAZOLAM [Suspect]
     Active Substance: MIDAZOLAM
     Indication: Confusional state
     Dosage: UNK
     Route: 065
  12. MIDAZOLAM [Suspect]
     Active Substance: MIDAZOLAM
     Indication: Agitation
  13. MORPHINE SULFATE [Suspect]
     Active Substance: MORPHINE SULFATE
     Indication: Product used for unknown indication
     Dosage: UNK
     Route: 065
  14. TOCILIZUMAB [Interacting]
     Active Substance: TOCILIZUMAB
     Indication: COVID-19
     Dosage: 324 MILLIGRAM, ONCE A DAY(162 MG, IN 2 DIFFERENT SITES)
     Route: 058
  15. TOCILIZUMAB [Interacting]
     Active Substance: TOCILIZUMAB
     Indication: Respiratory failure
  16. TOCILIZUMAB [Interacting]
     Active Substance: TOCILIZUMAB
     Indication: Interstitial lung disease

REACTIONS (18)
  - Hypotension [Fatal]
  - Stupor [Fatal]
  - Acute kidney injury [Fatal]
  - Septic shock [Fatal]
  - Herpes simplex viraemia [Fatal]
  - Metabolic acidosis [Fatal]
  - Acute hepatic failure [Fatal]
  - Liver function test [Fatal]
  - Neurological examination abnormal [Unknown]
  - Agitation [Unknown]
  - Confusional state [Unknown]
  - Pupils unequal [Unknown]
  - Drug interaction [Unknown]
  - Shock haemorrhagic [Unknown]
  - Product use in unapproved indication [Unknown]
  - Product use issue [Unknown]
  - Off label use [Fatal]
  - Herpes simplex [Unknown]
